FAERS Safety Report 14563121 (Version 1)
Quarter: 2018Q1

REPORT INFORMATION
  Report Type: Spontaneous
  Country: US (occurrence: US)
  Receive Date: 20180222
  Receipt Date: 20180222
  Transmission Date: 20180509
  Serious: Yes (Hospitalization, Other)
  Sender: FDA-Public Use
  Company Number: US-MALLINCKRODT-T201800749

PATIENT
  Age: 59 Year
  Sex: Female
  Weight: 74 kg

DRUGS (3)
  1. CLONIDINE. [Suspect]
     Active Substance: CLONIDINE
     Indication: HOT FLUSH
  2. FUROSEMIDE. [Suspect]
     Active Substance: FUROSEMIDE
     Indication: POLYURIA
  3. FENTANYL TRANSDERMAL SYSTEM [Suspect]
     Active Substance: FENTANYL
     Indication: PAIN
     Dosage: 100 MCG/HR, EVERY 3 DAYS
     Route: 062
     Dates: start: 2004

REACTIONS (7)
  - Hot flush [Unknown]
  - Hypersomnia [Unknown]
  - Pancreatitis relapsing [Unknown]
  - Heart rate decreased [Unknown]
  - Drug intolerance [Unknown]
  - Weight decreased [Unknown]
  - Viral infection [Unknown]

NARRATIVE: CASE EVENT DATE: 20180206
